FAERS Safety Report 5894801-0 (Version None)
Quarter: 2008Q3

REPORT INFORMATION
  Report Type: 
  Country: None (occurrence: None)
  Receive Date: 20080922
  Receipt Date: 20080915
  Transmission Date: 20090109
  Serious: Yes (Hospitalization, Other)
  Sender: FDA-Public Use
  Company Number: ADR2032008

PATIENT
  Age: 41 Year
  Sex: Male

DRUGS (2)
  1. ALENDRONIC ACID TABLETS [Suspect]
     Dosage: 1 TABLET WEEKLY ORAL
     Route: 048
  2. STEROIDS [Concomitant]

REACTIONS (3)
  - APNOEIC ATTACK [None]
  - MALAISE [None]
  - SLEEP APNOEA SYNDROME [None]
